FAERS Safety Report 13835405 (Version 2)
Quarter: 2017Q3

REPORT INFORMATION
  Report Type: Spontaneous
  Country: IT (occurrence: IT)
  Receive Date: 20170804
  Receipt Date: 20170814
  Transmission Date: 20171127
  Serious: Yes (Hospitalization)
  Sender: FDA-Public Use
  Company Number: IT-ASTRAZENECA-2017SE77926

PATIENT
  Age: 28603 Day
  Sex: Male
  Weight: 106 kg

DRUGS (2)
  1. METOPROLOL. [Concomitant]
     Active Substance: METOPROLOL
     Dates: start: 20170710, end: 20170711
  2. BRILIQUE [Suspect]
     Active Substance: TICAGRELOR
     Indication: PLATELET AGGREGATION
     Route: 048
     Dates: start: 20170710, end: 20170711

REACTIONS (1)
  - Paroxysmal atrioventricular block [Unknown]

NARRATIVE: CASE EVENT DATE: 20170710
